FAERS Safety Report 9828517 (Version 4)
Quarter: 2014Q2

REPORT INFORMATION
  Report Type: Spontaneous
  Country: US (occurrence: US)
  Receive Date: 20140117
  Receipt Date: 20140526
  Transmission Date: 20141212
  Serious: Yes (Hospitalization, Other)
  Sender: FDA-Public Use
  Company Number: US-UCBSA-108711

PATIENT
  Age: 63 Year
  Sex: Female
  Weight: 64.4 kg

DRUGS (12)
  1. CIMZIA [Suspect]
     Indication: CROHN^S DISEASE
     Dosage: INJECTS SELF
     Route: 058
     Dates: start: 20130508
  2. FOLIC ACID [Concomitant]
     Indication: VITAMIN SUPPLEMENTATION
     Dosage: TAKING FOR 4 YEARS
     Route: 048
  3. MAGNESIUM OXIDE [Concomitant]
     Indication: MINERAL SUPPLEMENTATION
     Dosage: TEN 400MG THROUGHOUT THE DAY
     Route: 048
     Dates: start: 2004
  4. OMEPRAZOLE [Concomitant]
     Indication: GASTROOESOPHAGEAL REFLUX DISEASE
     Dosage: TAKING FOR ABOUT 30 YEARS
     Route: 048
  5. POTASSIUM [Concomitant]
     Indication: MINERAL SUPPLEMENTATION
     Route: 048
     Dates: start: 2004
  6. LEVOTHYROXINE [Concomitant]
     Indication: THYROID DISORDER
     Route: 048
     Dates: start: 2004
  7. CALCITRITOL [Concomitant]
     Indication: MINERAL SUPPLEMENTATION
     Route: 048
     Dates: start: 2004
  8. STIRONOLACTONE [Concomitant]
     Indication: BLOOD MAGNESIUM
     Dosage: TAKING FOR A COUPLE OF MONTH
  9. BICYCLOMINE [Concomitant]
     Indication: CROHN^S DISEASE
     Dosage: TAKINF OVER YEAR AND HALF
     Route: 048
  10. TENTASA [Concomitant]
     Indication: CROHN^S DISEASE
     Dosage: TAKING OVER A YEAR
     Route: 048
  11. CALCIUM CITRATE [Concomitant]
     Indication: SUPPLEMENTATION THERAPY
     Route: 048
     Dates: start: 2004
  12. BABY ASA [Concomitant]
     Indication: CEREBROVASCULAR ACCIDENT
     Route: 048
     Dates: start: 2004

REACTIONS (3)
  - Crohn^s disease [Recovered/Resolved]
  - Rash generalised [Recovered/Resolved]
  - Malaise [Recovered/Resolved]
